FAERS Safety Report 9524719 (Version 1)
Quarter: 2013Q1

REPORT INFORMATION
  Report Type: Spontaneous
  Country: US (occurrence: None)
  Receive Date: 20130305
  Receipt Date: 20130305
  Transmission Date: 20140127
  Serious: Yes (Hospitalization, Other)
  Sender: FDA-Public Use
  Company Number: 163-21880-12022889

PATIENT
  Age: 81 Year
  Sex: Male

DRUGS (6)
  1. REVLIMID [Suspect]
     Indication: MYELODYSPLASTIC SYNDROME
     Route: 048
     Dates: start: 20120113, end: 20120213
  2. METFORMIN [Concomitant]
  3. SYNTHROID (LEVOTHYROXINE SODIUM) [Concomitant]
  4. LOSARTAN [Concomitant]
  5. AMLODIPINE [Concomitant]
  6. METOPROLOL [Concomitant]

REACTIONS (3)
  - Viral infection [None]
  - Neutrophil count decreased [None]
  - White blood cell count decreased [None]
